FAERS Safety Report 8024410-9 (Version None)
Quarter: 2011Q4

REPORT INFORMATION
  Report Type: 
  Country: None (occurrence: None)
  Receive Date: 20111130
  Receipt Date: 20110728
  Transmission Date: 20120403
  Serious: Yes (Hospitalization)
  Sender: FDA-Public Use
  Company Number: 332799

PATIENT
  Age: 63 Year
  Sex: Male

DRUGS (3)
  1. NOVOLOG [Suspect]
     Indication: TYPE 1 DIABETES MELLITUS
     Dosage: , SUBCUTANEOUS
     Route: 058
  2. LANTUS [Concomitant]
  3. NOVOLOG MIX 70/30 [Concomitant]

REACTIONS (2)
  - BLOOD GLUCOSE INCREASED [None]
  - DEVICE MALFUNCTION [None]
